FAERS Safety Report 15714229 (Version 2)
Quarter: 2018Q4

REPORT INFORMATION
  Report Type: Spontaneous
  Country: ES (occurrence: ES)
  Receive Date: 20181212
  Receipt Date: 20181228
  Transmission Date: 20190205
  Serious: Yes (Hospitalization, Other)
  Sender: FDA-Public Use
  Company Number: ES-TERSERA THERAPEUTICS LLC-TSR2017000721

PATIENT

DRUGS (13)
  1. ENZALUTAMIDE [Suspect]
     Active Substance: ENZALUTAMIDE
     Dosage: UNK, UNK
     Route: 048
  2. OMEPRAZOL                          /00661201/ [Concomitant]
     Active Substance: OMEPRAZOLE
     Indication: DYSPEPSIA
     Dosage: UNK, UNK
     Route: 065
     Dates: start: 20050101
  3. ZOLADEX [Suspect]
     Active Substance: GOSERELIN ACETATE
     Dosage: 1 DOSAGE FORM, UNK
     Route: 058
     Dates: start: 200511
  4. ENALAPRIL [Concomitant]
     Active Substance: ENALAPRIL
     Indication: HYPERTENSION
     Dosage: UNK, UNK
     Route: 065
     Dates: start: 20151222
  5. ZOLADEX [Suspect]
     Active Substance: GOSERELIN ACETATE
     Indication: PROSTATE CANCER
     Dosage: 11 MILLIGRAM, Q3 MONTHS
     Route: 058
     Dates: start: 200511
  6. PREDNISONE. [Suspect]
     Active Substance: PREDNISONE
     Indication: PROSTATE CANCER
     Dosage: 5 MILLIGRAM, BID
     Route: 048
     Dates: start: 20161228
  7. TAMSULOSIN [Concomitant]
     Active Substance: TAMSULOSIN
     Indication: PROSTATE CANCER
     Dosage: UNK, UNK
     Route: 065
     Dates: start: 201504
  8. TRANKIMAZIN [Concomitant]
     Active Substance: ALPRAZOLAM
     Indication: ANXIETY
     Dosage: UNK, UNK
     Route: 065
     Dates: start: 20150501
  9. ENZALUTAMIDE [Suspect]
     Active Substance: ENZALUTAMIDE
     Indication: PROSTATE CANCER
     Dosage: 4 DOSAGE FORM, QD
     Route: 048
     Dates: start: 20151123, end: 20161213
  10. DENOSUMAB [Suspect]
     Active Substance: DENOSUMAB
     Indication: OSTEOPOROSIS
     Dosage: 120.0MG MONTHLY
     Route: 058
     Dates: start: 20170101
  11. ZYTIGA [Suspect]
     Active Substance: ABIRATERONE ACETATE
     Indication: PROSTATE CANCER
     Dosage: 1000 MILLIGRAM, QD
     Route: 048
     Dates: start: 20161228
  12. ZOLADEX [Suspect]
     Active Substance: GOSERELIN ACETATE
     Dosage: 10.8 MILLIGRAM, UNK
     Route: 058
     Dates: start: 20151101
  13. LORMETAZEPAM [Concomitant]
     Active Substance: LORMETAZEPAM
     Indication: INSOMNIA
     Dosage: UNK, UNK
     Route: 065
     Dates: start: 20050101

REACTIONS (6)
  - Urinary tract infection [Recovered/Resolved]
  - Muscular weakness [Unknown]
  - Incorrect dose administered [Unknown]
  - Metastases to bone [Unknown]
  - Metastases to spine [Unknown]
  - Off label use [Unknown]

NARRATIVE: CASE EVENT DATE: 20171004
